FAERS Safety Report 9531711 (Version 1)
Quarter: 2013Q3

REPORT INFORMATION
  Report Type: Spontaneous
  Country: US (occurrence: US)
  Receive Date: 20130918
  Receipt Date: 20130918
  Transmission Date: 20140515
  Serious: Yes (Other)
  Sender: FDA-Public Use
  Company Number: US-JNJFOC-20130907153

PATIENT
  Sex: 0

DRUGS (3)
  1. TOPIRAMATE [Suspect]
     Indication: PARTIAL SEIZURES
     Dosage: TARGET DOSE OF 300 MG PER DAY
     Route: 048
  2. PHENYTOIN [Concomitant]
     Indication: PARTIAL SEIZURES
     Route: 065
  3. CARBAMAZEPINE [Concomitant]
     Indication: PARTIAL SEIZURES
     Route: 065

REACTIONS (12)
  - Cognitive disorder [Unknown]
  - Visual impairment [Unknown]
  - Memory impairment [Unknown]
  - Balance disorder [Unknown]
  - Disturbance in attention [Unknown]
  - Headache [Unknown]
  - Paraesthesia [Unknown]
  - Nausea [Unknown]
  - Diarrhoea [Unknown]
  - Fatigue [Unknown]
  - Irritability [Unknown]
  - Dizziness [Unknown]
